FAERS Safety Report 6864727-4 (Version None)
Quarter: 2010Q3

REPORT INFORMATION
  Report Type: 
  Country: None (occurrence: None)
  Receive Date: 20100721
  Receipt Date: 20080402
  Transmission Date: 20110219
  Serious: No
  Sender: FDA-Public Use
  Company Number: US-PFIZER INC-2008029879

PATIENT
  Sex: Male
  Weight: 65.9 kg

DRUGS (9)
  1. CHANTIX [Suspect]
     Dates: start: 20080315
  2. TENEX [Concomitant]
  3. ZESTRIL [Concomitant]
  4. COREG [Concomitant]
  5. ZOCOR [Concomitant]
  6. ALLEGRA [Concomitant]
  7. PROSCAR [Concomitant]
  8. SPIRIVA [Concomitant]
  9. PRILOSEC [Concomitant]

REACTIONS (1)
  - ABDOMINAL DISCOMFORT [None]
